FAERS Safety Report 8995868 (Version 2)
Quarter: 2013Q1

REPORT INFORMATION
  Report Type: Spontaneous
  Country: US (occurrence: US)
  Receive Date: 20130103
  Receipt Date: 20130222
  Transmission Date: 20140127
  Serious: Yes (Other)
  Sender: FDA-Public Use
  Company Number: US-009507513-1212USA008872

PATIENT
  Age: 55 Year
  Sex: Male

DRUGS (12)
  1. RALTEGRAVIR POTASSIUM [Suspect]
     Indication: HIV INFECTION
     Dosage: UNK
     Route: 048
     Dates: start: 20091111
  2. LOPINAVIR (+) RITONAVIR [Interacting]
     Indication: HIV INFECTION
     Dosage: 400/100 MG, BID
     Dates: start: 20061228, end: 20100603
  3. EMTRICITABINE [Concomitant]
     Indication: HIV INFECTION
     Dosage: UNK
     Dates: start: 20091111
  4. TENOFOVIR DISOPROXIL FUMARATE [Concomitant]
     Indication: HIV INFECTION
     Dosage: 300 MG, QD
     Dates: start: 20061228
  5. ATORVASTATIN [Concomitant]
     Dosage: 10 MG, QD
  6. EZETIMIBE [Concomitant]
     Dosage: 10 MG, QD
  7. FENOFIBRATE [Concomitant]
     Dosage: 48 MG, QD
  8. FENOFIBRATE [Concomitant]
     Dosage: 160 MG, QD
  9. HYDROCHLOROTHIAZIDE (+) TRIAMTERENE [Concomitant]
     Dosage: 25/37.5 MG, QD
  10. FELODIPINE [Concomitant]
     Dosage: 5 MG, QD
  11. TAMSULOSIN HYDROCHLORIDE [Concomitant]
     Dosage: 0.4 MG, QD
  12. TESTOSTERONE [Concomitant]
     Dosage: 5 MG, QD

REACTIONS (2)
  - Dyslipidaemia [Recovering/Resolving]
  - Drug interaction [Unknown]
